FAERS Safety Report 5049486-2 (Version None)
Quarter: 2006Q3

REPORT INFORMATION
  Report Type: 
  Country: None (occurrence: None)
  Receive Date: 20060711
  Receipt Date: 20060711
  Transmission Date: 20061208
  Serious: Yes (Life-Threatening, Hospitalization)
  Sender: FDA-Public Use
  Company Number: None

PATIENT
  Age: 54 Year
  Sex: Male

DRUGS (12)
  1. GEMCITABINE [Suspect]
     Indication: TONGUE NEOPLASM MALIGNANT STAGE UNSPECIFIED
     Dosage: 3000
     Dates: start: 20060522
  2. GEMCITABINE [Suspect]
     Indication: TONGUE NEOPLASM MALIGNANT STAGE UNSPECIFIED
     Dosage: 3000
     Dates: start: 20060605
  3. GEMCITABINE [Suspect]
     Indication: TONGUE NEOPLASM MALIGNANT STAGE UNSPECIFIED
     Dosage: 3000
     Dates: start: 20060619
  4. PACLITAXEL [Suspect]
     Dosage: 150
     Dates: start: 20060522
  5. PACLITAXEL [Suspect]
     Dosage: 150
     Dates: start: 20060605
  6. PACLITAXEL [Suspect]
     Dosage: 150
     Dates: start: 20060619
  7. DEXAMETHASONE TAB [Concomitant]
  8. ZOFRAN [Concomitant]
  9. BENADRYL [Concomitant]
  10. FAMITODINE [Concomitant]
  11. DURAGESIC-100 [Concomitant]
  12. LORTAB [Concomitant]

REACTIONS (10)
  - BLOOD CALCIUM INCREASED [None]
  - CONFUSIONAL STATE [None]
  - DEPRESSED LEVEL OF CONSCIOUSNESS [None]
  - DISEASE PROGRESSION [None]
  - DISORIENTATION [None]
  - INFECTION [None]
  - OEDEMA PERIPHERAL [None]
  - OXYGEN SATURATION DECREASED [None]
  - SINUSITIS [None]
  - WHITE BLOOD CELL COUNT INCREASED [None]
